FAERS Safety Report 5067698-9 (Version None)
Quarter: 2006Q3

REPORT INFORMATION
  Report Type: 
  Country: None (occurrence: None)
  Receive Date: 20060728
  Receipt Date: 20060711
  Transmission Date: 20061208
  Serious: Yes (Hospitalization)
  Sender: FDA-Public Use
  Company Number: ES200605003749

PATIENT
  Age: 42 Year
  Sex: Female

DRUGS (4)
  1. FORTEO [Suspect]
     Indication: OSTEOPOROSIS
     Dosage: 20 UG DAILY (1/D) SUBCUTANEOUS
     Route: 058
     Dates: start: 20060501
  2. FORTEO PEN (FORTEO PEN) [Concomitant]
  3. CALCIUM (CALCIUM) [Concomitant]
  4. CORTICOSTEROIDS) [Concomitant]

REACTIONS (4)
  - BRONCHIAL DISORDER [None]
  - LOCALISED INFECTION [None]
  - PAIN [None]
  - RHEUMATOID ARTHRITIS [None]
